FAERS Safety Report 4865908-1 (Version None)
Quarter: 2005Q4

REPORT INFORMATION
  Report Type: 
  Country: None (occurrence: None)
  Receive Date: 20051223
  Receipt Date: 20051220
  Transmission Date: 20060501
  Serious: Yes (Other)
  Sender: FDA-Public Use
  Company Number: PHBS2005BE18742

PATIENT
  Sex: Female

DRUGS (3)
  1. TRILEPTAL [Suspect]
     Indication: EPILEPSY
     Dosage: 600 MG, BID
     Route: 048
  2. TEGRETOL [Suspect]
     Indication: EPILEPSY
     Dosage: 400 MG, BID
     Route: 048
  3. NEURONTIN [Suspect]
     Dosage: 600 MG, TID

REACTIONS (5)
  - COLOUR BLINDNESS [None]
  - ELECTROENCEPHALOGRAM ABNORMAL [None]
  - OPTIC NEURITIS [None]
  - SIGHT DISABILITY [None]
  - VISUAL EVOKED POTENTIALS ABNORMAL [None]
